FAERS Safety Report 16223629 (Version 1)
Quarter: 2019Q2

REPORT INFORMATION
  Report Type: Spontaneous
  Country: US (occurrence: US)
  Receive Date: 20190422
  Receipt Date: 20190422
  Transmission Date: 20190711
  Serious: No
  Sender: FDA-Public Use
  Company Number: US-AKRON, INC.-2066095

PATIENT
  Sex: Female

DRUGS (1)
  1. APRACLONIDINE [Suspect]
     Active Substance: APRACLONIDINE HYDROCHLORIDE
     Route: 047

REACTIONS (2)
  - Photophobia [Recovered/Resolved]
  - Eye pain [Recovered/Resolved]
